FAERS Safety Report 17108241 (Version 1)
Quarter: 2019Q4

REPORT INFORMATION
  Report Type: Report from Study
  Country: FR (occurrence: FR)
  Receive Date: 20191203
  Receipt Date: 20191203
  Transmission Date: 20200122
  Serious: Yes (Death)
  Sender: FDA-Public Use
  Company Number: FR-PFIZER INC-2019520080

PATIENT
  Sex: Female

DRUGS (3)
  1. PACLITAXEL. [Suspect]
     Active Substance: PACLITAXEL
     Indication: BREAST CANCER METASTATIC
     Dosage: WEEKLY AS A 1-H INTRAVENOUS INFUSION OF 80 MG/M^2 ON DAY 1, 8, 15, 22 AND 29
     Route: 042
  2. CALCIUM FOLINATE [Suspect]
     Active Substance: LEUCOVORIN CALCIUM
     Indication: BREAST CANCER METASTATIC
     Dosage: 90 MG, QD (ONE A DAY).
     Route: 048
  3. TEGAFUR URACIL [Suspect]
     Active Substance: TEGAFUR
     Indication: BREAST CANCER METASTATIC
     Dosage: 300 MG/M^2, TID (THREE TIME A DAY) FROM DAYS 1 TO 28
     Route: 048

REACTIONS (1)
  - Febrile neutropenia [Fatal]
